FAERS Safety Report 8561479 (Version 4)
Quarter: 2012Q4

REPORT INFORMATION
  Report Type: 
  Country: FR (occurrence: FR)
  Receive Date: 20120515
  Receipt Date: 20121116
  Transmission Date: 20130627
  Serious: Yes (Death, Life-Threatening, Hospitalization)
  Sender: FDA-Public Use
  Company Number: FR-BIOGENIDEC-2012BI016276

PATIENT
  Age: 57 Year
  Sex: Female

DRUGS (7)
  1. TYSABRI [Suspect]
     Indication: MULTIPLE SCLEROSIS
     Route: 042
     Dates: start: 20090306, end: 20120417
  2. METFORMINE [Concomitant]
     Indication: TYPE 2 DIABETES MELLITUS
  3. NEURONTIN [Concomitant]
  4. KARDEGIC [Concomitant]
  5. RIVOTRIL [Concomitant]
  6. VESICARE [Concomitant]
  7. THYROXINE [Concomitant]

REACTIONS (1)
  - Progressive multifocal leukoencephalopathy [Fatal]
